FAERS Safety Report 10958401 (Version 3)
Quarter: 2015Q2

REPORT INFORMATION
  Report Type: Report from Study
  Country: US (occurrence: US)
  Receive Date: 20150326
  Receipt Date: 20150520
  Transmission Date: 20150821
  Serious: Yes (Death, Other)
  Sender: FDA-Public Use
  Company Number: US-GILEAD-2015-0143740

PATIENT
  Sex: Male

DRUGS (2)
  1. AZTREONAM LYSINE [Suspect]
     Active Substance: AZTREONAM LYSINE
     Indication: BRONCHIECTASIS
     Dosage: 75 MG, UNK
     Route: 055
     Dates: start: 20121008, end: 201305
  2. AZTREONAM LYSINE [Suspect]
     Active Substance: AZTREONAM LYSINE
     Indication: PSEUDOMONAS INFECTION

REACTIONS (7)
  - Off label use [Unknown]
  - Therapy cessation [Unknown]
  - Unevaluable event [Unknown]
  - Respiratory failure [Fatal]
  - Pneumonia staphylococcal [Fatal]
  - Myocardial infarction [Fatal]
  - Septic shock [Fatal]
